FAERS Safety Report 22277303 (Version 6)
Quarter: 2024Q1

REPORT INFORMATION
  Report Type: Report from Study
  Country: CA (occurrence: CA)
  Receive Date: 20230503
  Receipt Date: 20240220
  Transmission Date: 20240410
  Serious: Yes (Hospitalization)
  Sender: FDA-Public Use
  Company Number: CA-ABBVIE-4747327

PATIENT
  Age: 65 Year
  Sex: Male
  Weight: 74 kg

DRUGS (16)
  1. UPADACITINIB [Suspect]
     Active Substance: UPADACITINIB
     Indication: Dermatitis atopic
     Route: 048
     Dates: start: 20230321, end: 20230419
  2. UPADACITINIB [Suspect]
     Active Substance: UPADACITINIB
     Indication: Dermatitis atopic
     Route: 048
     Dates: start: 20230428
  3. SYNTHROID [Concomitant]
     Active Substance: LEVOTHYROXINE SODIUM
     Indication: Hypothyroidism
     Route: 048
     Dates: start: 2003
  4. PRISTIQ EXTENDED-RELEASE [Concomitant]
     Active Substance: DESVENLAFAXINE SUCCINATE
     Indication: Adjustment disorder
     Route: 048
     Dates: start: 2017
  5. ATORVASTATIN [Concomitant]
     Active Substance: ATORVASTATIN
     Indication: Dyslipidaemia
     Route: 048
     Dates: start: 2021
  6. AMITRIPTYLINE [Concomitant]
     Active Substance: AMITRIPTYLINE
     Indication: Adjustment disorder
     Dosage: TIME INTERVAL: AS NECESSARY: 25 TO 75 MG
     Route: 048
     Dates: start: 2017
  7. DEXILANT [Concomitant]
     Active Substance: DEXLANSOPRAZOLE
     Indication: Gastrooesophageal reflux disease
     Route: 048
     Dates: start: 2013
  8. ZOPICLONE [Concomitant]
     Active Substance: ZOPICLONE
     Indication: Adjustment disorder
     Route: 048
     Dates: start: 2017
  9. TYLENOL ARTHRITIS PAIN [Concomitant]
     Active Substance: ACETAMINOPHEN
     Indication: Myalgia
     Dosage: TIME INTERVAL: AS NECESSARY
     Route: 048
     Dates: start: 202304
  10. PERINDOPRIL [Concomitant]
     Active Substance: PERINDOPRIL
     Indication: Hypertension
     Dosage: MG
     Route: 048
     Dates: start: 2022, end: 20230426
  11. PROTOPIC [Concomitant]
     Active Substance: TACROLIMUS
     Indication: Dermatitis atopic
     Dosage: TIME INTERVAL: AS NECESSARY: 0.1% ?1 APPLICATION
     Route: 061
     Dates: start: 20230217
  12. MOMETASONE [Concomitant]
     Active Substance: MOMETASONE
     Indication: Dermatitis atopic
     Dosage: TIME INTERVAL: AS NECESSARY: 1 APPLICATION
     Route: 061
     Dates: start: 20220621
  13. ARISTOCORT [Concomitant]
     Active Substance: TRIAMCINOLONE DIACETATE
     Indication: Dermatitis atopic
     Dosage: TIME INTERVAL: AS NECESSARY: 1 APPLICATION
     Dates: start: 20210930
  14. OLOPATADINE [Concomitant]
     Active Substance: OLOPATADINE
     Indication: Rhinitis allergic
     Dosage: TIME INTERVAL: AS NECESSARY: 0.2%
     Route: 047
     Dates: start: 20210615
  15. MLE MOMETASONE FUROATE [Concomitant]
     Indication: Rhinitis allergic
     Dosage: TIME INTERVAL: AS NECESSARY: 2 SPRAY, 50 MCG
     Route: 045
     Dates: start: 20210615
  16. XIIDRA [Concomitant]
     Active Substance: LIFITEGRAST
     Indication: Rhinitis allergic
     Dosage: TIME INTERVAL: AS NECESSARY
     Route: 047
     Dates: start: 20230307

REACTIONS (3)
  - Acute kidney injury [Recovered/Resolved]
  - Gastroenteritis [Recovered/Resolved]
  - Dehydration [Recovered/Resolved]

NARRATIVE: CASE EVENT DATE: 20230419
